FAERS Safety Report 7258777-6 (Version None)
Quarter: 2011Q1

REPORT INFORMATION
  Report Type: 
  Country: None (occurrence: None)
  Receive Date: 20110129
  Receipt Date: 20100513
  Transmission Date: 20110831
  Serious: No
  Sender: FDA-Public Use
  Company Number: US-ABBOTT-10P-163-0645176-00

PATIENT
  Sex: Male

DRUGS (1)
  1. HUMIRA [Suspect]
     Indication: PRODUCT USED FOR UNKNOWN INDICATION
     Dosage: 160 MG LOADING DOSE
     Dates: start: 20100512, end: 20100512

REACTIONS (2)
  - INCORRECT STORAGE OF DRUG [None]
  - POOR QUALITY DRUG ADMINISTERED [None]
